FAERS Safety Report 15836100 (Version 3)
Quarter: 2019Q1

REPORT INFORMATION
  Report Type: Spontaneous
  Country: PT (occurrence: PT)
  Receive Date: 20190117
  Receipt Date: 20190314
  Transmission Date: 20190417
  Serious: Yes (Hospitalization, Other)
  Sender: FDA-Public Use
  Company Number: PT-SAKK-2018SA322243AA

PATIENT
  Age: 75 Year
  Sex: Male

DRUGS (5)
  1. ENOXAPARIN SODIUM. [Suspect]
     Active Substance: ENOXAPARIN SODIUM
     Indication: VENOUS THROMBOSIS
  2. PERINDOPRIL [Suspect]
     Active Substance: PERINDOPRIL
     Indication: VENOUS THROMBOSIS
     Dosage: 10 MG
  3. SIMVASTATIN. [Suspect]
     Active Substance: SIMVASTATIN
     Indication: VENOUS THROMBOSIS
     Dosage: 10 MG
  4. ENOXAPARIN SODIUM. [Suspect]
     Active Substance: ENOXAPARIN SODIUM
     Indication: PULMONARY EMBOLISM
     Dosage: TOOK 10 INJECTIONS
     Route: 065
  5. WARFARIN [Concomitant]
     Active Substance: WARFARIN
     Indication: VENOUS THROMBOSIS
     Dosage: 5 MG, QD

REACTIONS (7)
  - Tachypnoea [Unknown]
  - Pulmonary embolism [Recovered/Resolved]
  - Wheezing [Unknown]
  - Tachycardia [Unknown]
  - Deep vein thrombosis [Unknown]
  - Chest pain [Unknown]
  - Dyspnoea [Unknown]
